FAERS Safety Report 5518575-8 (Version None)
Quarter: 2007Q4

REPORT INFORMATION
  Report Type: 
  Country: None (occurrence: None)
  Receive Date: 20071115
  Receipt Date: 20071105
  Transmission Date: 20080405
  Serious: Yes (Other)
  Sender: FDA-Public Use
  Company Number: JP-PFIZER INC-2007093642

PATIENT
  Age: 60 Year
  Sex: Female

DRUGS (7)
  1. LIPITOR [Suspect]
     Dosage: DAILY DOSE:10MG
     Route: 048
     Dates: start: 20050101, end: 20071001
  2. VALSARTAN [Concomitant]
     Route: 048
  3. PANALDINE [Concomitant]
     Route: 048
  4. DEPAS [Concomitant]
     Route: 048
  5. PLETAL [Concomitant]
     Route: 048
  6. LOXOPROFEN SODIUM [Concomitant]
     Route: 048
  7. SELBEX [Concomitant]
     Route: 048

REACTIONS (1)
  - AGRANULOCYTOSIS [None]
